FAERS Safety Report 5740524-8 (Version None)
Quarter: 2008Q2

REPORT INFORMATION
  Report Type: 
  Country: None (occurrence: None)
  Receive Date: 20080516
  Receipt Date: 20080514
  Transmission Date: 20081010
  Serious: Yes (Hospitalization)
  Sender: FDA-Public Use
  Company Number: ES-JNJFOC-20080407429

PATIENT
  Age: 48 Year
  Sex: Female

DRUGS (6)
  1. TOPAMAX [Suspect]
     Indication: DEPRESSION
     Route: 048
     Dates: start: 20070825, end: 20070828
  2. ESCITALOPRAM [Suspect]
     Indication: DEPRESSION
     Route: 048
     Dates: start: 20070825, end: 20070828
  3. SEROQUEL [Suspect]
     Indication: DEPRESSION
     Route: 048
     Dates: start: 20070825, end: 20070829
  4. DORKEN [Suspect]
     Indication: DEPRESSION
     Route: 048
     Dates: start: 20070815, end: 20070825
  5. LEXATIN [Suspect]
     Indication: DEPRESSION
     Route: 048
     Dates: start: 20070825, end: 20070829
  6. DISTRANEURINE [Suspect]
     Indication: DEPRESSION
     Route: 048
     Dates: start: 20070815, end: 20070825

REACTIONS (1)
  - HEPATITIS CHOLESTATIC [None]
